FAERS Safety Report 4482144-1 (Version None)
Quarter: 2004Q4

REPORT INFORMATION
  Report Type: 
  Country: None (occurrence: None)
  Receive Date: 20041020
  Receipt Date: 20040930
  Transmission Date: 20050328
  Serious: Yes (Hospitalization)
  Sender: FDA-Public Use
  Company Number: USA040979748

PATIENT
  Age: 63 Year
  Sex: Male
  Weight: 130 kg

DRUGS (5)
  1. CYMBALTA [Suspect]
     Indication: DIABETIC NEUROPATHY
     Dosage: 10 MG DAY
     Route: 048
     Dates: start: 20040901, end: 20040901
  2. ACTOS [Concomitant]
  3. INSULIN [Concomitant]
  4. DETROL LA [Concomitant]
  5. ZOCOR (SIMVASTATIN RATIOPHARM) [Concomitant]

REACTIONS (2)
  - HEADACHE [None]
  - HEART RATE DECREASED [None]
